FAERS Safety Report 10930112 (Version 1)
Quarter: 2015Q1

REPORT INFORMATION
  Report Type: Spontaneous
  Country: US (occurrence: None)
  Receive Date: 20150317
  Receipt Date: 20150317
  Transmission Date: 20150721
  Serious: Yes (Other)
  Sender: FDA-Public Use
  Company Number: KAD201503-000461

PATIENT
  Sex: Female

DRUGS (3)
  1. RIBASPHERE [Suspect]
     Active Substance: RIBAVIRIN
     Indication: HEPATITIS C
     Route: 048
     Dates: start: 20140715, end: 201410
  2. VITAMINS NOS [Concomitant]
     Active Substance: VITAMINS
  3. PEGINTERFERON ALFA (PEGINTERFERON ALFA) [Suspect]
     Active Substance: PEGINTERFERON ALFA-2A OR PEGINTERFERON ALFA-2B
     Indication: HEPATITIS C
     Route: 058
     Dates: start: 20140715, end: 201410

REACTIONS (3)
  - Subchorionic haemorrhage [None]
  - Maternal exposure before pregnancy [None]
  - Ovarian cyst [None]

NARRATIVE: CASE EVENT DATE: 20150113
